FAERS Safety Report 11392761 (Version 1)
Quarter: 2015Q3

REPORT INFORMATION
  Report Type: Spontaneous
  Country: US (occurrence: US)
  Receive Date: 20150818
  Receipt Date: 20150818
  Transmission Date: 20151125
  Serious: Yes (Hospitalization, Other)
  Sender: FDA-Public Use
  Company Number: US-CIPLA LTD.-2015US06516

PATIENT

DRUGS (18)
  1. CICLOPIROX. [Suspect]
     Active Substance: CICLOPIROX
     Dosage: 0.7 %, QD
     Route: 061
  2. NIFEDIPINE. [Suspect]
     Active Substance: NIFEDIPINE
     Dosage: 30 MG, QD
     Route: 065
  3. METOPROLOL [Suspect]
     Active Substance: METOPROLOL
     Dosage: 50 MG, TID
     Route: 065
  4. PRAVASTATIN [Suspect]
     Active Substance: PRAVASTATIN\PRAVASTATIN SODIUM
     Dosage: 40 MG, QD
     Route: 065
  5. FUROSEMIDE. [Suspect]
     Active Substance: FUROSEMIDE
     Dosage: 40 MG, BID
     Route: 065
  6. ESCITALOPRAM [Suspect]
     Active Substance: ESCITALOPRAM OXALATE
     Dosage: 10 MG, QD
     Route: 065
  7. CLONAZEPAM. [Suspect]
     Active Substance: CLONAZEPAM
     Dosage: 0.5 MG, BID
     Route: 065
  8. MORPHINE SULFATE ER [Suspect]
     Active Substance: MORPHINE SULFATE
     Dosage: 30 MG, BID
     Route: 065
  9. DIGOXIN. [Suspect]
     Active Substance: DIGOXIN
     Dosage: 0.125 MG, QD
     Route: 065
  10. ESOMEPRAZOLE [Suspect]
     Active Substance: ESOMEPRAZOLE
     Dosage: 40 MG, QD
     Route: 065
  11. NYSTATIN. [Suspect]
     Active Substance: NYSTATIN
     Dosage: 500,000 UNITS EVERY 6 H
     Route: 065
  12. VALACYCLOVIR HYDROCHLORIDE. [Suspect]
     Active Substance: VALACYCLOVIR HYDROCHLORIDE
     Dosage: 500 MG, QD
     Route: 048
  13. ACYCLOVIR. [Suspect]
     Active Substance: ACYCLOVIR
     Route: 048
  14. AMIODARONE [Suspect]
     Active Substance: AMIODARONE
     Dosage: 200 MG, TID
     Route: 065
  15. LISINOPRIL. [Suspect]
     Active Substance: LISINOPRIL
     Dosage: 10 MG, QD
     Route: 065
  16. FERROUS SULFATE [Suspect]
     Active Substance: FERROUS SULFATE\FERROUS SULFATE, DRIED
     Dosage: 325 MG, TID
     Route: 065
  17. LEVOTHYROXINE. [Suspect]
     Active Substance: LEVOTHYROXINE
     Dosage: 100 MCG, QD
     Route: 065
  18. ASPIRIN. [Suspect]
     Active Substance: ASPIRIN
     Dosage: 81 MG, QD
     Route: 065

REACTIONS (14)
  - Gastrointestinal toxicity [Unknown]
  - Dermatitis contact [Unknown]
  - Vomiting [Unknown]
  - Pain in extremity [Unknown]
  - Dermatitis atopic [Unknown]
  - Pyrexia [Recovered/Resolved]
  - Herpes simplex [Unknown]
  - Parakeratosis [Unknown]
  - Dyspnoea [Unknown]
  - Eczema nummular [Unknown]
  - Mycosis fungoides [Unknown]
  - Dermatitis [Unknown]
  - Nausea [Unknown]
  - Drug eruption [Unknown]
